FAERS Safety Report 13305823 (Version 1)
Quarter: 2017Q1

REPORT INFORMATION
  Report Type: Spontaneous
  Country: KR (occurrence: KR)
  Receive Date: 20170308
  Receipt Date: 20170308
  Transmission Date: 20170428
  Serious: Yes (Hospitalization, Other)
  Sender: FDA-Public Use
  Company Number: KR-009507513-1703KOR002365

PATIENT
  Age: 57 Year
  Sex: Male
  Weight: 69.1 kg

DRUGS (14)
  1. CISPLATIN. [Concomitant]
     Active Substance: CISPLATIN
     Indication: CHEMOTHERAPY
     Dosage: STRENGTH: 50MG/100ML; 100 MG ONCE
     Route: 042
     Dates: start: 20170223, end: 20170223
  2. CODENAL (CHLORPHENIRAMINE MALEATE (+) DIHYDROCODEINE BITARTRATE (+) GU [Concomitant]
     Indication: COUGH
     Dosage: 1 TABLET, TID
     Route: 048
     Dates: start: 20170215
  3. CISPLATIN. [Concomitant]
     Active Substance: CISPLATIN
     Indication: CHEMOTHERAPY
     Dosage: STRENGTH:10MG/20 ML;  10 MG, ONCE
     Route: 042
     Dates: start: 20170223, end: 20170223
  4. ALIMTA [Concomitant]
     Active Substance: PEMETREXED DISODIUM
     Indication: PALLIATIVE CARE
  5. DEXAMETHASONE DAEWOO [Concomitant]
     Indication: ANTIEMETIC SUPPORTIVE CARE
     Dosage: 4 MG, BID
     Route: 048
     Dates: start: 20170222, end: 20170222
  6. LANSTON [Concomitant]
     Active Substance: LANSOPRAZOLE
     Indication: PROPHYLAXIS
     Dosage: 1 TABLET, QD
     Route: 048
     Dates: start: 20170222, end: 20170303
  7. ALOXI [Concomitant]
     Active Substance: PALONOSETRON HYDROCHLORIDE
     Indication: ANTIEMETIC SUPPORTIVE CARE
     Dosage: 1 AMPLE ONCE
     Route: 042
     Dates: start: 20170223, end: 20170223
  8. ALIMTA [Concomitant]
     Active Substance: PEMETREXED DISODIUM
     Indication: CHEMOTHERAPY
     Dosage: 950 MG, ONCE
     Route: 042
     Dates: start: 20170223, end: 20170223
  9. CISPLATIN. [Concomitant]
     Active Substance: CISPLATIN
     Indication: PALLIATIVE CARE
  10. ULTRACET [Concomitant]
     Active Substance: ACETAMINOPHEN\TRAMADOL HYDROCHLORIDE
     Indication: PAIN
     Dosage: 1 TABLET, BID
     Route: 048
     Dates: start: 20170215
  11. EMEND (FOSAPREPITANT DIMEGLUMINE) [Suspect]
     Active Substance: FOSAPREPITANT DIMEGLUMINE
     Indication: PROPHYLAXIS OF NAUSEA AND VOMITING
     Dosage: 150 MG, ONCE
     Route: 042
     Dates: start: 20170223, end: 20170223
  12. DEXAMETHASONE DAEWOO [Concomitant]
     Indication: SKIN REACTION
     Dosage: 12 MG, ONCE
     Route: 048
     Dates: start: 20170223, end: 20170223
  13. FOLIC ACID SINIL [Concomitant]
     Indication: PROPHYLAXIS
     Dosage: 1 TABLET, QD
     Route: 048
     Dates: start: 20170214
  14. CISPLATIN. [Concomitant]
     Active Substance: CISPLATIN
     Indication: PALLIATIVE CARE

REACTIONS (2)
  - Pneumonia [Recovering/Resolving]
  - Rash [Recovering/Resolving]

NARRATIVE: CASE EVENT DATE: 20170228
